FAERS Safety Report 16354036 (Version 3)
Quarter: 2020Q3

REPORT INFORMATION
  Report Type: Report from Study
  Country: IT (occurrence: IT)
  Receive Date: 20190524
  Receipt Date: 20190621
  Transmission Date: 20201105
  Serious: Yes (Death, Hospitalization)
  Sender: FDA-Public Use
  Company Number: IT-ROCHE-2311198

PATIENT
  Age: 56 Year
  Sex: Female
  Weight: 44 kg

DRUGS (20)
  1. CYCLOPHOSPHAMIDE. [Suspect]
     Active Substance: CYCLOPHOSPHAMIDE
     Indication: DIFFUSE LARGE B-CELL LYMPHOMA
     Dosage: DATE OF MOST RECENT DOSE OF CYCLOPHOSPHAMIDE PRIOR TO SAE ONSET: 09/APR/2019 (1100 MG)
     Route: 042
     Dates: start: 20190314
  2. LENTO KALIUM [Concomitant]
     Active Substance: POTASSIUM CHLORIDE
     Indication: HYPOKALAEMIA
     Route: 048
     Dates: start: 20190419, end: 20190420
  3. DOXORUBICIN [Suspect]
     Active Substance: DOXORUBICIN
     Indication: DIFFUSE LARGE B-CELL LYMPHOMA
     Dosage: DATE OF MOST RECENT DOSE OF DOXORUBICIN PRIOR TO SAE ONSET: 09/APR/2019 (70 MG)
     Route: 042
     Dates: start: 20190314
  4. AUGMENTIN [Concomitant]
     Active Substance: AMOXICILLIN\CLAVULANATE POTASSIUM
     Indication: INFLAMMATION
     Route: 048
     Dates: start: 20190328, end: 20190403
  5. DELTACORTENE [Concomitant]
     Active Substance: PREDNISONE
     Indication: PREMEDICATION
     Route: 048
     Dates: start: 20190328, end: 20190403
  6. POLATUZUMAB VEDOTIN. [Suspect]
     Active Substance: POLATUZUMAB VEDOTIN
     Indication: DIFFUSE LARGE B-CELL LYMPHOMA
     Dosage: DATE OF MOST RECENT DOSE OF BLINDED POLATUZUMAB VEDOTIN PRIOR TO SAE ONSET: 09/APR/2019
     Route: 042
     Dates: start: 20190315
  7. PREDNISONE. [Suspect]
     Active Substance: PREDNISONE
     Indication: DIFFUSE LARGE B-CELL LYMPHOMA
     Dosage: DATE OF MOST RECENT DOSE OF PREDNISONE PRIOR TO SAE ONSET: 09/APR/2019 (60 MG)?ON DAYS 1?5 OF EVERY
     Route: 048
     Dates: start: 20190314
  8. GENTAMICIN. [Concomitant]
     Active Substance: GENTAMICIN
     Indication: PSEUDOMONAS INFECTION
     Route: 042
     Dates: start: 20190519
  9. LANSOPRAZOLO [Concomitant]
     Active Substance: LANSOPRAZOLE
     Indication: PROPHYLAXIS
     Route: 048
     Dates: start: 20190307
  10. CIPROXIN [CIPROFLOXACIN] [Concomitant]
     Indication: PYREXIA
     Route: 048
     Dates: start: 20190404, end: 20190405
  11. DIFLUCAN [Concomitant]
     Active Substance: FLUCONAZOLE
     Indication: PROPHYLAXIS
     Route: 048
     Dates: start: 20190415
  12. PLACEBO [Suspect]
     Active Substance: UNSPECIFIED INGREDIENT
     Indication: DIFFUSE LARGE B-CELL LYMPHOMA
     Dosage: DATE OF MOST RECENT DOSE OF BLINDED VINCRISTINE PRIOR TO SAE ONSET: 09/APR/2019
     Route: 042
     Dates: start: 20190314
  13. RITUXIMAB. [Suspect]
     Active Substance: RITUXIMAB
     Indication: DIFFUSE LARGE B-CELL LYMPHOMA
     Dosage: DATE OF MOST RECENT DOSE OF RITUXIMAB PRIOR TO SAE ONSET: 09/APR/2019 (550 MG)
     Route: 042
     Dates: start: 20190314
  14. BACTRIM [Concomitant]
     Active Substance: SULFAMETHOXAZOLE\TRIMETHOPRIM
     Route: 048
     Dates: start: 20190419, end: 20190422
  15. LANSOX [Concomitant]
     Active Substance: LANSOPRAZOLE
     Route: 048
     Dates: start: 20190419
  16. BACTRIM [Concomitant]
     Active Substance: SULFAMETHOXAZOLE\TRIMETHOPRIM
     Indication: PROPHYLAXIS
     Route: 048
     Dates: start: 20190307
  17. CIPROXIN [CIPROFLOXACIN] [Concomitant]
     Indication: DIARRHOEA
     Route: 048
     Dates: start: 20190419, end: 20190420
  18. ACCOFIL [Concomitant]
     Active Substance: FILGRASTIM
     Indication: PROPHYLAXIS
     Dosage: 30 U (UNIT)
     Route: 058
     Dates: start: 20190415, end: 20190418
  19. CODEX [SACCHAROMYCES BOULARDII] [Concomitant]
     Route: 048
     Dates: start: 20190429
  20. VFEND [Concomitant]
     Active Substance: VORICONAZOLE
     Indication: ASPERGILLUS INFECTION
     Route: 042
     Dates: start: 20190417

REACTIONS (1)
  - Pneumonia [Fatal]

NARRATIVE: CASE EVENT DATE: 20190429
